FAERS Safety Report 21583450 (Version 4)
Quarter: 2024Q1

REPORT INFORMATION
  Report Type: Report from Study
  Country: US (occurrence: US)
  Receive Date: 20221111
  Receipt Date: 20240114
  Transmission Date: 20240409
  Serious: Yes (Hospitalization, Other)
  Sender: FDA-Public Use
  Company Number: US-AUROBINDO-AUR-APL-2022-042616

PATIENT
  Sex: Female
  Weight: 57 kg

DRUGS (12)
  1. BELINOSTAT [Suspect]
     Active Substance: BELINOSTAT
     Indication: Acute myeloid leukaemia
     Dosage: 7750 MILLIGRAM
     Route: 065
     Dates: start: 20220718
  2. BELINOSTAT [Suspect]
     Active Substance: BELINOSTAT
     Dosage: 7750 MILLIGRAM
     Route: 065
     Dates: start: 20220808
  3. BELINOSTAT [Suspect]
     Active Substance: BELINOSTAT
     Dosage: 7750 MILLIGRAM
     Route: 065
     Dates: start: 20220906
  4. BELINOSTAT [Suspect]
     Active Substance: BELINOSTAT
     Dosage: 7750 MILLIGRAM
     Route: 065
     Dates: start: 20220929
  5. BELINOSTAT [Suspect]
     Active Substance: BELINOSTAT
     Dosage: 7750 MILLIGRAM
     Route: 065
     Dates: start: 20220930
  6. BELINOSTAT [Suspect]
     Active Substance: BELINOSTAT
     Dosage: 1000 MILLIGRAM/SQ. METER, ONCE A DAY,  ON DAYS 1-5
     Route: 042
  7. PEVONEDISTAT HYDROCHLORIDE [Suspect]
     Active Substance: PEVONEDISTAT HYDROCHLORIDE
     Indication: Acute myeloid leukaemia
     Dosage: 234 MILLIGRAM
     Route: 065
     Dates: start: 20220718
  8. PEVONEDISTAT HYDROCHLORIDE [Suspect]
     Active Substance: PEVONEDISTAT HYDROCHLORIDE
     Dosage: 234 MILLIGRAM
     Route: 065
     Dates: start: 20220808
  9. PEVONEDISTAT HYDROCHLORIDE [Suspect]
     Active Substance: PEVONEDISTAT HYDROCHLORIDE
     Dosage: 234 MILLIGRAM
     Route: 065
     Dates: start: 20220906
  10. PEVONEDISTAT HYDROCHLORIDE [Suspect]
     Active Substance: PEVONEDISTAT HYDROCHLORIDE
     Dosage: 234 MILLIGRAM
     Route: 065
     Dates: start: 20220926
  11. PEVONEDISTAT HYDROCHLORIDE [Suspect]
     Active Substance: PEVONEDISTAT HYDROCHLORIDE
     Dosage: 234 MILLIGRAM
     Route: 065
     Dates: start: 20220930
  12. PEVONEDISTAT HYDROCHLORIDE [Suspect]
     Active Substance: PEVONEDISTAT HYDROCHLORIDE
     Dosage: 50 MILLIGRAM/SQ. METER, ONCE A DAY, ON DAYS 1, 3, AND 5
     Route: 065

REACTIONS (18)
  - Pain in extremity [Not Recovered/Not Resolved]
  - Electrocardiogram QT prolonged [Unknown]
  - Oral pain [Unknown]
  - Epistaxis [Unknown]
  - Anxiety [Unknown]
  - Vomiting [Unknown]
  - Eye pruritus [Unknown]
  - Hypertension [Unknown]
  - Nausea [Unknown]
  - Dyspnoea [Unknown]
  - Paraesthesia [Unknown]
  - Peripheral sensory neuropathy [Unknown]
  - Subcutaneous abscess [Unknown]
  - Vulvovaginal pain [Unknown]
  - Vitreous haemorrhage [Unknown]
  - Rectal haemorrhage [Unknown]
  - Asthenia [Not Recovered/Not Resolved]
  - Eye disorder [Unknown]

NARRATIVE: CASE EVENT DATE: 20220721
